FAERS Safety Report 8839221 (Version 1)
Quarter: 2012Q4

REPORT INFORMATION
  Report Type: 
  Country: ES (occurrence: ES)
  Receive Date: 20121015
  Receipt Date: 20121015
  Transmission Date: 20130627
  Serious: Yes (Other)
  Sender: FDA-Public Use
  Company Number: ES-BAYER-2012-104044

PATIENT
  Sex: Female

DRUGS (1)
  1. YAZ [Suspect]
     Route: 064

REACTIONS (2)
  - Foetal growth restriction [None]
  - Premature baby [None]
